FAERS Safety Report 13139417 (Version 1)
Quarter: 2017Q1

REPORT INFORMATION
  Report Type: Spontaneous
  Country: GB (occurrence: GB)
  Receive Date: 20170123
  Receipt Date: 20170123
  Transmission Date: 20170428
  Serious: Yes (Other)
  Sender: FDA-Public Use
  Company Number: GB-PFIZER INC-2017025594

PATIENT
  Sex: Female

DRUGS (1)
  1. DOXYCYCLINE HYCLATE. [Suspect]
     Active Substance: DOXYCYCLINE HYCLATE
     Dosage: UNK

REACTIONS (7)
  - Memory impairment [Unknown]
  - Insomnia [Unknown]
  - Feeling jittery [Unknown]
  - Dizziness [Unknown]
  - Nervousness [Unknown]
  - Palpitations [Unknown]
  - Tremor [Unknown]
